FAERS Safety Report 10568280 (Version 1)
Quarter: 2014Q4

REPORT INFORMATION
  Report Type: Spontaneous
  Country: US (occurrence: None)
  Receive Date: 20141024
  Receipt Date: 20141024
  Transmission Date: 20150529
  Serious: No
  Sender: FDA-Public Use
  Company Number: 1448092

PATIENT
  Age: 66 Year
  Sex: Female

DRUGS (2)
  1. ZELBORAF [Suspect]
     Active Substance: VEMURAFENIB
     Indication: MALIGNANT MELANOMA
     Dosage: 4 PILLS TWICE A DAY (2 IN 1 D)
     Dates: start: 20140801, end: 20140808
  2. CLARITINE (LORATADINE) [Concomitant]

REACTIONS (8)
  - Fatigue [None]
  - Rash erythematous [None]
  - Burning sensation [None]
  - Rash [None]
  - Nasopharyngitis [None]
  - Paraesthesia [None]
  - Arthralgia [None]
  - Asthenopia [None]
